FAERS Safety Report 6727423-X (Version None)
Quarter: 2010Q2

REPORT INFORMATION
  Report Type: 
  Country: None (occurrence: None)
  Receive Date: 20100517
  Receipt Date: 20100506
  Transmission Date: 20101027
  Serious: Yes (Other)
  Sender: FDA-Public Use
  Company Number: PHHY2010CO23427

PATIENT
  Sex: Male

DRUGS (8)
  1. ZOMETA [Suspect]
     Indication: METASTASES TO SPINE
     Dosage: UNK
     Route: 042
     Dates: start: 20080801, end: 20090201
  2. ZOMETA [Suspect]
     Indication: FIBROUS DYSPLASIA OF BONE
  3. LOSARTAN POTASSIUM [Concomitant]
     Indication: HYPERTENSION
  4. HYDROCHLOROTHIAZIDE [Concomitant]
     Indication: HYPERTENSION
  5. OMEPRAZOLE [Concomitant]
  6. ENOXAPARIN SODIUM [Concomitant]
     Indication: PULMONARY VEIN OCCLUSION
  7. AMLODIPINE [Concomitant]
  8. GABAPENTIN [Concomitant]
     Dosage: 300 MG EVERY 8 HOURS

REACTIONS (7)
  - BONE DISORDER [None]
  - BONE LESION [None]
  - CANCER PAIN [None]
  - HAEMATOCRIT DECREASED [None]
  - OSTEONECROSIS OF JAW [None]
  - PULMONARY EMBOLISM [None]
  - WHITE BLOOD CELL COUNT DECREASED [None]
